FAERS Safety Report 25546607 (Version 1)
Quarter: 2025Q3

REPORT INFORMATION
  Report Type: Spontaneous
  Country: US (occurrence: US)
  Receive Date: 20250713
  Receipt Date: 20250713
  Transmission Date: 20251020
  Serious: No
  Sender: SANOFI AVENTIS
  Company Number: US-SA-2025SA195898

PATIENT
  Age: 66 Year
  Sex: Female

DRUGS (1)
  1. KEVZARA [Suspect]
     Active Substance: SARILUMAB
     Indication: Polymyalgia rheumatica
     Dosage: 200 MG, QOW
     Route: 058
     Dates: start: 202506

REACTIONS (5)
  - Injection site irritation [Unknown]
  - Injection site swelling [Unknown]
  - Injection site discolouration [Unknown]
  - Skin exfoliation [Unknown]
  - Injection site rash [Unknown]

NARRATIVE: CASE EVENT DATE: 20250601
